FAERS Safety Report 18906146 (Version 1)
Quarter: 2021Q1

REPORT INFORMATION
  Report Type: Spontaneous
  Country: JP (occurrence: JP)
  Receive Date: 20210217
  Receipt Date: 20210217
  Transmission Date: 20210420
  Serious: Yes (Other)
  Sender: FDA-Public Use
  Company Number: JP-BAYER-2021-067497

PATIENT
  Age: 8 Decade
  Sex: Male

DRUGS (1)
  1. STIVARGA [Suspect]
     Active Substance: REGORAFENIB
     Indication: COLON CANCER

REACTIONS (6)
  - Metastases to meninges [None]
  - Motor dysfunction [None]
  - Blood sodium abnormal [None]
  - Muscular weakness [None]
  - Blood potassium abnormal [None]
  - Dysstasia [None]
